FAERS Safety Report 7297970-3 (Version None)
Quarter: 2011Q1

REPORT INFORMATION
  Report Type: 
  Country: None (occurrence: None)
  Receive Date: 20110128
  Receipt Date: 20110127
  Transmission Date: 20110831
  Serious: Yes (Other)
  Sender: FDA-Public Use
  Company Number: VER-2011-00118

PATIENT
  Age: 30 Year
  Sex: Male
  Weight: 149.687 kg

DRUGS (4)
  1. CYCLOSET [Suspect]
     Indication: TYPE 2 DIABETES MELLITUS
     Dosage: 0.8 MG (0.8 MG, IN THE MORNING), ORAL
     Dates: start: 20110112, end: 20110112
  2. METFORMIN HCL [Concomitant]
  3. VALTURNA [Suspect]
     Indication: HYPERTENSION
     Dosage: 1 TAB (1 IN 1 D), ORAL
     Route: 048
     Dates: start: 20110112
  4. CARDIZEM CD [Concomitant]

REACTIONS (2)
  - LOSS OF CONSCIOUSNESS [None]
  - FALL [None]
